FAERS Safety Report 4732462-4 (Version None)
Quarter: 2005Q3

REPORT INFORMATION
  Report Type: 
  Country: None (occurrence: None)
  Receive Date: 20050801
  Receipt Date: 20050721
  Transmission Date: 20060218
  Serious: Yes (Hospitalization, Other)
  Sender: FDA-Public Use
  Company Number: 2005105240

PATIENT
  Sex: Female
  Weight: 136.0791 kg

DRUGS (6)
  1. NEURONTIN [Suspect]
     Indication: NEUROPATHY PERIPHERAL
     Dosage: 1200 MG (300 MG 2 IN 1 D) ORAL
     Route: 048
  2. LIPITOR [Suspect]
     Indication: BLOOD CHOLESTEROL INCREASED
     Dates: start: 20050701
  3. BENADRYL [Suspect]
     Indication: RASH MACULAR
     Dates: start: 20050701, end: 20050701
  4. PLAVIX [Suspect]
     Indication: ILL-DEFINED DISORDER
     Dates: start: 20050701, end: 20050701
  5. HUMULIN (INSULIN HUMAN, INSULIN ISOPHANE, HUMAN BIOSYNTHETIC) [Suspect]
     Indication: DIABETES MELLITUS
  6. HUMALOG [Suspect]
     Indication: DIABETES MELLITUS

REACTIONS (10)
  - BLOOD CHOLESTEROL INCREASED [None]
  - BLOOD GLUCOSE DECREASED [None]
  - BURNING SENSATION [None]
  - CHEST PAIN [None]
  - FATIGUE [None]
  - NEUROPATHY PERIPHERAL [None]
  - PRURITUS [None]
  - RASH MACULAR [None]
  - THROMBOSIS [None]
  - TREMOR [None]
